FAERS Safety Report 4524505-8 (Version None)
Quarter: 2005Q1

REPORT INFORMATION
  Report Type: 
  Country: None (occurrence: None)
  Receive Date: 20041117
  Receipt Date: 20031118
  Transmission Date: 20050727
  Serious: Yes (Hospitalization)
  Sender: FDA-Public Use
  Company Number: US-JNJFOC-20031103800

PATIENT
  Age: 71 Year
  Sex: Female
  Weight: 64.4108 kg

DRUGS (2)
  1. LEVAQUIN [Suspect]
     Indication: SINUSITIS
     Dosage: 500 MG, ORAL
     Route: 048
     Dates: start: 20031107, end: 20031110
  2. VENTOLIN [Concomitant]

REACTIONS (4)
  - CANDIDIASIS [None]
  - DISORIENTATION [None]
  - DIZZINESS [None]
  - DYSPEPSIA [None]
